FAERS Safety Report 9905671 (Version 2)
Quarter: 2014Q1

REPORT INFORMATION
  Report Type: Spontaneous
  Country: US (occurrence: US)
  Receive Date: 20140218
  Receipt Date: 20140218
  Transmission Date: 20141002
  Serious: No
  Sender: FDA-Public Use
  Company Number: US-GILEAD-2012-0050521

PATIENT
  Age: 51 Year
  Sex: Female

DRUGS (2)
  1. LETAIRIS [Suspect]
     Indication: PULMONARY HYPERTENSION
     Dosage: 10 MG, UNK
     Route: 048
     Dates: start: 20111101, end: 20120120
  2. LETAIRIS [Suspect]
     Indication: SCLERODERMA

REACTIONS (2)
  - Middle ear effusion [Not Recovered/Not Resolved]
  - Ear tube insertion [Unknown]
